FAERS Safety Report 6485173-1 (Version None)
Quarter: 2009Q4

REPORT INFORMATION
  Report Type: 
  Country: None (occurrence: None)
  Receive Date: 20091209
  Receipt Date: 20091127
  Transmission Date: 20100525
  Serious: Yes (Hospitalization)
  Sender: FDA-Public Use
  Company Number: JP-ABBOTT-09P-087-0613127-00

PATIENT
  Age: 78 Year
  Sex: Male

DRUGS (7)
  1. LEUPLIN SR FOR INJECTION 11.25 MG [Suspect]
     Indication: PROSTATE CANCER STAGE II
     Route: 058
     Dates: start: 20070118
  2. TAMSULOSIN HYDROCHLORIDE [Concomitant]
     Indication: BENIGN PROSTATIC HYPERPLASIA
     Route: 048
     Dates: start: 20060901, end: 20071010
  3. NORVASC [Concomitant]
     Indication: HYPERTENSION
     Route: 048
  4. FERROMIA [Concomitant]
     Indication: ANAEMIA
     Route: 048
  5. ALOSENN [Concomitant]
     Indication: CONSTIPATION
     Route: 048
  6. BICALUTAMIDE [Concomitant]
     Indication: PROSTATE CANCER STAGE II
     Route: 048
     Dates: start: 20061124
  7. UBRETID [Concomitant]
     Indication: NEUROGENIC BLADDER
     Route: 048
     Dates: start: 20071112, end: 20071207

REACTIONS (4)
  - BENIGN PROSTATIC HYPERPLASIA [None]
  - CONSTIPATION [None]
  - NOCTURIA [None]
  - URINARY RETENTION [None]
